FAERS Safety Report 16466274 (Version 1)
Quarter: 2019Q2

REPORT INFORMATION
  Report Type: Spontaneous
  Country: RU (occurrence: RU)
  Receive Date: 20190622
  Receipt Date: 20190622
  Transmission Date: 20190711
  Serious: Yes (Hospitalization, Other)
  Sender: FDA-Public Use
  Company Number: RU-B.I. PHARMACEUTICALS,INC./RIDGEFIELD-2019-BI-026840

PATIENT
  Sex: Male

DRUGS (2)
  1. ARCOXIA [Suspect]
     Active Substance: ETORICOXIB
     Indication: PRODUCT USED FOR UNKNOWN INDICATION
     Route: 065
  2. PRADAXA [Suspect]
     Active Substance: DABIGATRAN ETEXILATE MESYLATE
     Indication: PRODUCT USED FOR UNKNOWN INDICATION
     Route: 065

REACTIONS (2)
  - Gastric ulcer [Unknown]
  - Atrial fibrillation [Unknown]
